FAERS Safety Report 7464885-7 (Version None)
Quarter: 2011Q2

REPORT INFORMATION
  Report Type: 
  Country: None (occurrence: None)
  Receive Date: 20110509
  Receipt Date: 20091122
  Transmission Date: 20111010
  Serious: Yes (Death, Other)
  Sender: FDA-Public Use
  Company Number: US-BAYER-200940310NA

PATIENT
  Age: 80 Year
  Sex: Male
  Weight: 79.365 kg

DRUGS (38)
  1. TRASYLOL [Suspect]
     Indication: AORTIC VALVE REPLACEMENT
     Dosage: 200 ML (PUMP PRIME)
     Route: 042
     Dates: start: 20030902, end: 20030902
  2. NITROGLYCERIN [Concomitant]
     Dosage: UNK, (TAKEN PRIOR TO SURGERY)
  3. NEPHROCAPS [Concomitant]
  4. LEVOPHED [Concomitant]
     Dosage: 0.3-0.5 MCG
     Route: 042
     Dates: start: 20030902
  5. PLATELETS [Concomitant]
     Dosage: 1 U, UNK
     Route: 042
     Dates: start: 20030902
  6. TRASYLOL [Suspect]
     Dosage: 25 ML/HR (INFUSION)
     Route: 042
     Dates: start: 20030902, end: 20030902
  7. ACETYLSALICYLIC ACID SRT [Concomitant]
     Dosage: 81 MG, QD
     Route: 048
  8. NEO-SYNEPHRINOL [Concomitant]
     Dosage: 120 UNK
     Route: 042
     Dates: start: 20030902, end: 20030902
  9. ALBUMIN (HUMAN) [Concomitant]
     Dosage: 1 U, UNK
     Dates: start: 20030902
  10. OMNIPAQUE 140 [Concomitant]
     Indication: CATHETERISATION CARDIAC
     Dosage: 145 ML, ONCE
     Route: 042
     Dates: start: 20030829, end: 20030829
  11. METOPROLOL [Concomitant]
     Dosage: 25 MG, Q6-8HRS
     Route: 048
     Dates: start: 20030830
  12. HEPARIN [Concomitant]
     Dosage: 42000 U, (DURING SURGERY)
     Dates: start: 20030902
  13. VITAMIN B [Concomitant]
  14. RENAGEL [Concomitant]
     Dosage: 2400 MG, TID
  15. FENTANYL [Concomitant]
     Dosage: 700 MCG TOTAL
     Route: 042
     Dates: start: 20030902
  16. VERSED [Concomitant]
     Dosage: 6 MG, UNK
     Route: 042
     Dates: start: 20030902
  17. SODIUM BICARBONATE [Concomitant]
     Dosage: 350 MG, TID
     Route: 048
  18. DIOVAN [Concomitant]
     Dosage: 160 MG, QD
     Route: 048
  19. ROCURONIUM [Concomitant]
     Dosage: 50 MG, UNK
     Dates: start: 20030902, end: 20030902
  20. ESOMEPRAZOLE [Concomitant]
     Dosage: 20 MG, QD
     Route: 048
     Dates: start: 20030830
  21. VASOPRESSIN [Concomitant]
     Dosage: 2-4 UNITS/HR
     Route: 042
     Dates: start: 20030902
  22. FRESH FROZEN PLASMA [Concomitant]
     Dosage: 3 U, UNK
     Route: 042
     Dates: start: 20030902, end: 20030902
  23. RED BLOOD CELLS [Concomitant]
     Dosage: 2 U, UNK
     Route: 042
     Dates: start: 20030902, end: 20030902
  24. TRASYLOL [Suspect]
     Indication: CORONARY ARTERY BYPASS
     Dosage: 1 ML, ONCE (INITIAL)
     Route: 042
     Dates: start: 20030902, end: 20030902
  25. TRASYLOL [Suspect]
     Dosage: 100 ML (LOADING)
     Route: 042
     Dates: start: 20030902, end: 20030902
  26. VIOXX [Concomitant]
     Dosage: 25 MG, QD
     Route: 048
  27. ASCORBIC ACID [Concomitant]
     Dosage: 500 MG, QD
     Route: 048
     Dates: end: 20030830
  28. LIPITOR [Concomitant]
     Dosage: 10 MG, HS
     Route: 048
     Dates: start: 20030830
  29. PROTAMINE SULFATE [Concomitant]
     Dosage: 50 MG, UNK
     Route: 042
     Dates: start: 20030902, end: 20030902
  30. PRIMACOR [Concomitant]
     Dosage: 0.37 MCG/KG/MIN
     Route: 042
     Dates: start: 20030902
  31. MAGNESIUM SULFATE [Concomitant]
     Dosage: 2 G, UNK
     Dates: start: 20030902
  32. METOPROLOL [Concomitant]
     Dosage: 50 MG, BID
     Route: 048
     Dates: end: 20030830
  33. CHOLESTYRAMINE [Concomitant]
  34. HEPARIN [Concomitant]
     Dosage: UNK (TAKEN PRIOR TO SURGERY)
  35. NITROGLYCERIN [Concomitant]
     Dosage: 0.25-0.5 MCG/KG/MIN
     Route: 042
     Dates: start: 20030902, end: 20030902
  36. PROPOFOL [Concomitant]
     Dosage: 2 MCG/KG/MIN
     Route: 042
     Dates: start: 20030902
  37. LIDOCAINE [Concomitant]
     Dosage: 100 MG, UNK
     Dates: start: 20030902
  38. CALCIUM CHLORIDE [Concomitant]
     Dosage: UNK
     Dates: start: 20030902

REACTIONS (13)
  - FEAR [None]
  - DEATH [None]
  - RENAL FAILURE [None]
  - RENAL IMPAIRMENT [None]
  - MULTI-ORGAN FAILURE [None]
  - ANHEDONIA [None]
  - ANXIETY [None]
  - UNEVALUABLE EVENT [None]
  - INJURY [None]
  - EMOTIONAL DISTRESS [None]
  - RENAL INJURY [None]
  - STRESS [None]
  - PAIN [None]
